FAERS Safety Report 24397516 (Version 2)
Quarter: 2024Q4

REPORT INFORMATION
  Report Type: Report from Study
  Country: US (occurrence: US)
  Receive Date: 20241004
  Receipt Date: 20241010
  Transmission Date: 20250115
  Serious: Yes (Hospitalization, Other)
  Sender: GILEAD
  Company Number: US-GILEAD-2024-0689717

PATIENT
  Age: 70 Year
  Sex: Male

DRUGS (10)
  1. AZTREONAM LYSINE [Suspect]
     Active Substance: AZTREONAM LYSINE
     Indication: Cystic fibrosis
     Dosage: 75 MG VIA ALTERA NEBULIZER THREE TIMES A DAY, 28 DAYS ON 28 DAYS OFF
     Route: 055
  2. AZTREONAM LYSINE [Suspect]
     Active Substance: AZTREONAM LYSINE
     Indication: Pseudomonas infection
  3. AZTREONAM LYSINE [Suspect]
     Active Substance: AZTREONAM LYSINE
     Indication: Illness
  4. ELIQUIS [Concomitant]
     Active Substance: APIXABAN
  5. JANUVIA [Concomitant]
     Active Substance: SITAGLIPTIN PHOSPHATE
  6. STEGLATRO [Concomitant]
     Active Substance: ERTUGLIFLOZIN PIDOLATE
  7. LOSARTAN [Concomitant]
     Active Substance: LOSARTAN
  8. ALBUTEROL SULFATE [Concomitant]
     Active Substance: ALBUTEROL SULFATE
  9. METOPROLOL [Concomitant]
     Active Substance: METOPROLOL
  10. TRIKAFTA [Concomitant]
     Active Substance: ELEXACAFTOR\IVACAFTOR\TEZACAFTOR

REACTIONS (1)
  - Cystic fibrosis [Unknown]
